FAERS Safety Report 6602041 (Version 2)
Quarter: 2018Q4

REPORT INFORMATION
  Report Type: Spontaneous
  Country: IT (occurrence: IT)
  Receive Date: 20080331
  Receipt Date: 20181204
  Transmission Date: 20190205
  Serious: Yes (Life-Threatening)
  Sender: FDA-Public Use
  Company Number: IT-SANOFI-SYNTHELABO-A06200800120

PATIENT
  Age: 69 Year
  Sex: Male

DRUGS (4)
  1. CALCIUM LEVOFOLINATE [Concomitant]
     Active Substance: LEVOLEUCOVORIN CALCIUM
     Indication: COLON CANCER STAGE III
     Dosage: 190 MG,PRN
     Route: 042
     Dates: start: 20071127, end: 20080228
  2. ELOXATIN [Suspect]
     Active Substance: OXALIPLATIN
     Dosage: 160 MG, QCY
     Route: 041
     Dates: start: 20080228, end: 20080228
  3. FLUOROURACIL TEVA [Concomitant]
     Active Substance: FLUOROURACIL
     Indication: COLON CANCER STAGE III
     Dosage: UNK UNK,PRN
     Route: 042
     Dates: start: 20071127, end: 20080228
  4. ELOXATIN [Suspect]
     Active Substance: OXALIPLATIN
     Indication: COLON CANCER STAGE III
     Dosage: 160 MG, QCY
     Route: 041
     Dates: start: 20071127, end: 20071127

REACTIONS (1)
  - Laryngospasm [Recovered/Resolved]

NARRATIVE: CASE EVENT DATE: 20080228
